FAERS Safety Report 10154061 (Version 1)
Quarter: 2014Q2

REPORT INFORMATION
  Report Type: Spontaneous
  Country: US (occurrence: None)
  Receive Date: 20140502
  Receipt Date: 20140502
  Transmission Date: 20141212
  Serious: Yes (Hospitalization)
  Sender: FDA-Public Use
  Company Number: UTC-047696

PATIENT
  Age: 67 Year
  Sex: Male

DRUGS (1)
  1. REMODULIN (2.5 MILLIGRAM/MILLILITERS, INJECTION FOR INFUSION) (TREPROSTINIL SODIUM) [Suspect]
     Indication: PULMONARY ARTERIAL HYPERTENSION
     Dosage: 17.26 UG/KG (0.012 UG/KG, 1 IN 1 MIN) SUBCUTANEOUS
     Route: 058
     Dates: start: 20140214

REACTIONS (1)
  - Lung transplant [None]
